FAERS Safety Report 23391887 (Version 2)
Quarter: 2024Q1

REPORT INFORMATION
  Report Type: Spontaneous
  Country: CA (occurrence: CA)
  Receive Date: 20240111
  Receipt Date: 20240307
  Transmission Date: 20240409
  Serious: Yes (Other)
  Sender: FDA-Public Use
  Company Number: CA-VIIV HEALTHCARE LIMITED-CA2023117226

PATIENT
  Age: 50 Year
  Sex: Male

DRUGS (4)
  1. RILPIVIRINE [Suspect]
     Active Substance: RILPIVIRINE
     Indication: HIV infection
     Dosage: UNK UNK, Q2M (600MG/3ML CABOTEGRAVIR, 900MG/3ML RILPIVIRINE)
     Route: 030
     Dates: start: 20230531
  2. RILPIVIRINE [Suspect]
     Active Substance: RILPIVIRINE
     Route: 030
  3. CABOTEGRAVIR [Suspect]
     Active Substance: CABOTEGRAVIR
     Indication: HIV infection
     Dosage: UNK UNK, Q2M (600MG/3ML CABOTEGRAVIR, 900MG/3ML RILPIVIRINE)
     Route: 030
     Dates: start: 20230531
  4. CABOTEGRAVIR [Suspect]
     Active Substance: CABOTEGRAVIR
     Route: 030

REACTIONS (5)
  - Syphilis [Unknown]
  - Injection site pain [Unknown]
  - Pain [Unknown]
  - Myalgia [Unknown]
  - Wound [Not Recovered/Not Resolved]

NARRATIVE: CASE EVENT DATE: 20230706
